FAERS Safety Report 12428616 (Version 1)
Quarter: 2016Q2

REPORT INFORMATION
  Report Type: Spontaneous
  Country: US (occurrence: US)
  Receive Date: 20160602
  Receipt Date: 20160602
  Transmission Date: 20160815
  Serious: No
  Sender: FDA-Public Use
  Company Number: US-BAYER-2016-108105

PATIENT

DRUGS (4)
  1. CLARITIN [Suspect]
     Active Substance: LORATADINE
     Indication: SEASONAL ALLERGY
  2. BENADRYL ALLERGY [ACRIVASTINE] [Concomitant]
  3. NAPHCON-A [BENZALKONIUM CHLORIDE,NAPHAZOLINE HYDROCHLORIDE,PHENIRA [Concomitant]
  4. FLONASE [Concomitant]
     Active Substance: FLUTICASONE PROPIONATE

REACTIONS (1)
  - Drug ineffective [None]
